FAERS Safety Report 21820384 (Version 2)
Quarter: 2025Q2

REPORT INFORMATION
  Report Type: Spontaneous
  Country: DE (occurrence: DE)
  Receive Date: 20230105
  Receipt Date: 20250606
  Transmission Date: 20250716
  Serious: Yes (Death, Life-Threatening, Hospitalization, Other)
  Sender: AUROBINDO
  Company Number: DE-CHEPLA-2022012410

PATIENT
  Age: 28 Year
  Sex: Female
  Weight: 95 kg

DRUGS (10)
  1. FLUCONAZOLE [Suspect]
     Active Substance: FLUCONAZOLE
     Indication: Antifungal treatment
     Route: 065
  2. FLUCLOXACILLIN [Suspect]
     Active Substance: FLUCLOXACILLIN
     Indication: Staphylococcal bacteraemia
     Dosage: 12 GIGABECQUEREL, ONCE A DAY
     Route: 065
  3. MEROPENEM [Suspect]
     Active Substance: MEROPENEM
     Indication: Antifungal treatment
     Dosage: 6 GRAM, ONCE A DAY
     Route: 065
  4. MEROPENEM [Suspect]
     Active Substance: MEROPENEM
     Route: 065
  5. VASOPRESSIN [Suspect]
     Active Substance: VASOPRESSIN
     Indication: Product used for unknown indication
     Route: 065
  6. CASPOFUNGIN [Suspect]
     Active Substance: CASPOFUNGIN
     Indication: Antifungal treatment
     Dosage: 70 MILLIGRAM, ONCE A DAY
     Route: 065
  7. HEPARIN [Suspect]
     Active Substance: HEPARIN SODIUM
     Indication: Product used for unknown indication
     Route: 065
  8. NOREPINEPHRINE [Suspect]
     Active Substance: NOREPINEPHRINE
     Indication: Product used for unknown indication
     Route: 065
  9. NOREPINEPHRINE [Suspect]
     Active Substance: NOREPINEPHRINE
     Route: 065
  10. PIPERACILLIN AND TAZOBACTAM [Suspect]
     Active Substance: PIPERACILLIN SODIUM\TAZOBACTAM SODIUM
     Indication: Antibiotic therapy
     Route: 065

REACTIONS (9)
  - Multiple organ dysfunction syndrome [Fatal]
  - Pulmonary function test decreased [Unknown]
  - Brain oedema [Unknown]
  - Acute respiratory distress syndrome [Unknown]
  - Brain injury [Unknown]
  - Haemorrhage [Unknown]
  - Thrombocytopenia [Unknown]
  - Staphylococcal bacteraemia [Unknown]
  - Renal failure [Unknown]
